FAERS Safety Report 4307317-X (Version None)
Quarter: 2004Q1

REPORT INFORMATION
  Report Type: 
  Country: None (occurrence: None)
  Receive Date: 20040226
  Receipt Date: 20040213
  Transmission Date: 20041129
  Serious: Yes (Other)
  Sender: FDA-Public Use
  Company Number: 2003110617

PATIENT
  Sex: Female

DRUGS (11)
  1. LIPITOR [Suspect]
     Indication: BLOOD CHOLESTEROL INCREASED
     Dosage: 10 MG (DAILY), ORAL
     Route: 048
     Dates: start: 19990101
  2. ANTINEOPLASTIC AGENTS [Suspect]
     Indication: BREAST CANCER
     Dates: start: 20010101
  3. LOSARTAN POTASSIUM (LOSARTAN POTASSIUM) [Concomitant]
  4. SERTRALINE HCL [Concomitant]
  5. FUROSEMIDE [Concomitant]
  6. ASCORBIC ACID [Concomitant]
  7. CALCIUM (CALCIUM) [Concomitant]
  8. QUININE SULFATE (QUININE SULFATE) [Concomitant]
  9. AMITRIPTYLINE HYDROCHLORIDE [Concomitant]
  10. TAMOXIFEN (TAMOXIFEN) [Concomitant]
  11. INSULIN [Concomitant]

REACTIONS (2)
  - ALOPECIA [None]
  - BREAST CANCER [None]
